FAERS Safety Report 9960343 (Version 1)
Quarter: 2014Q1

REPORT INFORMATION
  Report Type: Spontaneous
  Country: US (occurrence: US)
  Receive Date: 20140305
  Receipt Date: 20140305
  Transmission Date: 20141002
  Serious: Yes (Hospitalization)
  Sender: FDA-Public Use
  Company Number: US-UCBSA-113956

PATIENT
  Age: 0 None
  Sex: Male
  Weight: 2.91 kg

DRUGS (2)
  1. CIMZIA [Suspect]
     Indication: CROHN^S DISEASE
     Dosage: FOR 2 DOSES
     Route: 064
     Dates: start: 201305, end: 2013
  2. CIMZIA [Suspect]
     Indication: CROHN^S DISEASE
     Route: 064
     Dates: start: 2013, end: 201308

REACTIONS (2)
  - Respiratory rate increased [Recovered/Resolved]
  - Foetal exposure during pregnancy [Recovered/Resolved]
